FAERS Safety Report 8949012 (Version 2)
Quarter: 2013Q1

REPORT INFORMATION
  Report Type: Report from Study
  Country: DE (occurrence: DE)
  Receive Date: 20121206
  Receipt Date: 20130218
  Transmission Date: 20140127
  Serious: Yes (Other)
  Sender: FDA-Public Use
  Company Number: DE-BIOGENIDEC-2012BI047650

PATIENT
  Age: 42 Year
  Sex: Female
  Weight: 48 kg

DRUGS (4)
  1. TYSABRI [Suspect]
     Indication: MULTIPLE SCLEROSIS
     Route: 042
     Dates: start: 20070119
  2. RAMIPRIL [Concomitant]
     Indication: HYPERTENSION
  3. CETAPHIL [Concomitant]
     Indication: PSORIASIS
     Dates: start: 201208
  4. BIODERMA [Concomitant]
     Indication: PSORIASIS
     Dates: start: 201208

REACTIONS (1)
  - Malignant melanoma in situ [Recovered/Resolved]
